FAERS Safety Report 7054058-4 (Version None)
Quarter: 2010Q4

REPORT INFORMATION
  Report Type: 
  Country: None (occurrence: None)
  Receive Date: 20101020
  Receipt Date: 20101007
  Transmission Date: 20110411
  Serious: Yes (Other)
  Sender: FDA-Public Use
  Company Number: US-CELGENEUS-163-21880-10101047

PATIENT
  Sex: Male

DRUGS (3)
  1. REVLIMID [Suspect]
     Indication: MULTIPLE MYELOMA
     Route: 048
     Dates: start: 20060201
  2. REVLIMID [Suspect]
     Dosage: 15MG-25MG
     Route: 048
     Dates: start: 20100501
  3. REVLIMID [Suspect]
     Route: 048
     Dates: start: 20101001

REACTIONS (2)
  - COLON CANCER [None]
  - NEUROPATHY PERIPHERAL [None]
